FAERS Safety Report 11947751 (Version 1)
Quarter: 2016Q1

REPORT INFORMATION
  Report Type: Report from Study
  Country: PR (occurrence: PR)
  Receive Date: 20160125
  Receipt Date: 20160125
  Transmission Date: 20160526
  Serious: Yes (Hospitalization)
  Sender: FDA-Public Use
  Company Number: PR-ABBVIE-15K-131-1334212-00

PATIENT
  Age: 53 Year
  Sex: Female
  Weight: 70.37 kg

DRUGS (1)
  1. HUMIRA [Suspect]
     Active Substance: ADALIMUMAB
     Indication: RHEUMATOID ARTHRITIS
     Route: 058
     Dates: end: 20141226

REACTIONS (6)
  - Bronchial disorder [Not Recovered/Not Resolved]
  - Influenza [Unknown]
  - Blood glucose increased [Recovered/Resolved]
  - Bronchitis [Recovering/Resolving]
  - Pain [Not Recovered/Not Resolved]
  - Bronchospasm [Recovering/Resolving]

NARRATIVE: CASE EVENT DATE: 20141231
